FAERS Safety Report 4284411-3 (Version None)
Quarter: 2004Q1

REPORT INFORMATION
  Report Type: 
  Country: None (occurrence: None)
  Receive Date: 20040203
  Receipt Date: 20040121
  Transmission Date: 20041129
  Serious: Yes (Hospitalization)
  Sender: FDA-Public Use
  Company Number: PHBS2004TW01130

PATIENT
  Age: 24 Year
  Sex: Male

DRUGS (3)
  1. CYCLOSPORINE [Suspect]
     Indication: GLOMERULONEPHRITIS MINIMAL LESION
     Route: 065
  2. PREDNISOLONE [Suspect]
     Indication: GLOMERULONEPHRITIS MINIMAL LESION
     Route: 065
  3. MYCOPHENOLATE MOFETIL [Concomitant]

REACTIONS (23)
  - ANAEMIA [None]
  - ANASTOMOTIC HAEMORRHAGE [None]
  - ASCITES [None]
  - BLOOD CREATININE INCREASED [None]
  - BLOOD UREA INCREASED [None]
  - DECREASED APPETITE [None]
  - DISEASE RECURRENCE [None]
  - DRUG RESISTANCE [None]
  - DYSPNOEA [None]
  - GLOMERULONEPHRITIS MINIMAL LESION [None]
  - GRAFT DYSFUNCTION [None]
  - HAEMODIALYSIS [None]
  - HYPERLIPIDAEMIA [None]
  - HYPOALBUMINAEMIA [None]
  - METABOLIC ACIDOSIS [None]
  - NEPHRECTOMY [None]
  - NEPHROTIC SYNDROME [None]
  - OLIGURIA [None]
  - POST PROCEDURAL COMPLICATION [None]
  - PROTEINURIA [None]
  - PULMONARY OEDEMA [None]
  - RENAL IMPAIRMENT [None]
  - RENAL TRANSPLANT [None]
